FAERS Safety Report 10039220 (Version 4)
Quarter: 2014Q3

REPORT INFORMATION
  Report Type: Report from Study
  Country: US (occurrence: US)
  Receive Date: 20140326
  Receipt Date: 20140813
  Transmission Date: 20150326
  Serious: Yes (Hospitalization)
  Sender: FDA-Public Use
  Company Number: US-ACTELION-A-NJ2014-96088

PATIENT
  Age: 39 Year
  Sex: Female

DRUGS (8)
  1. VENTAVIS [Suspect]
     Active Substance: ILOPROST
     Dosage: 5 MCG 4XDAILY
     Route: 055
     Dates: start: 20130916
  2. SILDENAFIL [Concomitant]
     Active Substance: SILDENAFIL
     Dosage: 5 MG, Q8H
  3. OPSUMIT [Suspect]
     Active Substance: MACITENTAN
     Indication: PULMONARY ARTERIAL HYPERTENSION
     Dosage: 10 MG, QD
     Route: 048
     Dates: start: 20140109
  4. VENTAVIS [Suspect]
     Active Substance: ILOPROST
     Indication: PULMONARY ARTERIAL HYPERTENSION
     Dosage: 5 MCG 7XDAILY
     Route: 055
     Dates: start: 20140324
  5. SILDENAFIL [Concomitant]
     Active Substance: SILDENAFIL
     Dosage: 20 MG, TID
     Dates: start: 20130522
  6. IRON SULFATE [Concomitant]
     Active Substance: FERROUS SULFATE ANHYDROUS
     Dosage: 325 MG, BID
     Dates: start: 20140328
  7. LASIX [Concomitant]
     Active Substance: FUROSEMIDE
  8. CYMBALTA [Concomitant]
     Active Substance: DULOXETINE HYDROCHLORIDE
     Dosage: 30 MG, BID

REACTIONS (15)
  - Anaemia [Unknown]
  - Blood sodium decreased [Unknown]
  - Hypotension [Unknown]
  - Tension headache [Unknown]
  - Weight increased [Unknown]
  - Pulmonary arterial hypertension [Unknown]
  - Presyncope [Unknown]
  - Malaise [Unknown]
  - Intra-uterine contraceptive device insertion [Unknown]
  - Oedema [Unknown]
  - Dyspnoea [Unknown]
  - Loss of consciousness [Unknown]
  - Feeling abnormal [Unknown]
  - Generalised oedema [Unknown]
  - Fatigue [Unknown]

NARRATIVE: CASE EVENT DATE: 201403
